FAERS Safety Report 5627405-5 (Version None)
Quarter: 2008Q1

REPORT INFORMATION
  Report Type: 
  Country: None (occurrence: None)
  Receive Date: 20080215
  Receipt Date: 20080207
  Transmission Date: 20080703
  Serious: Yes (Other)
  Sender: FDA-Public Use
  Company Number: US-BRISTOL-MYERS SQUIBB COMPANY-14069926

PATIENT

DRUGS (1)
  1. ORENCIA [Suspect]

REACTIONS (1)
  - RENAL FAILURE [None]
